FAERS Safety Report 5775453-7 (Version None)
Quarter: 2008Q2

REPORT INFORMATION
  Report Type: 
  Country: None (occurrence: None)
  Receive Date: 20080617
  Receipt Date: 20080606
  Transmission Date: 20081010
  Serious: Yes (Other)
  Sender: FDA-Public Use
  Company Number: PHHY2008JP06145

PATIENT
  Age: 70 Year
  Sex: Male
  Weight: 70 kg

DRUGS (3)
  1. NEORAL [Suspect]
     Indication: PRURIGO
     Dosage: 200 MG/D
     Route: 048
     Dates: start: 20080116, end: 20080327
  2. NEORAL [Suspect]
     Dosage: 100 MG/D
     Route: 048
     Dates: start: 20080401, end: 20080411
  3. NEORAL [Suspect]
     Dosage: 50 AND 100 MG ON ALTERNATE DAYS

REACTIONS (9)
  - ARTHRALGIA [None]
  - BLOOD PRESSURE INCREASED [None]
  - BLOOD TRIGLYCERIDES INCREASED [None]
  - DIZZINESS [None]
  - GAMMA-GLUTAMYLTRANSFERASE INCREASED [None]
  - HEADACHE [None]
  - HEART RATE INCREASED [None]
  - RENAL HYPERTENSION [None]
  - TREMOR [None]
